FAERS Safety Report 17766700 (Version 1)
Quarter: 2020Q2

REPORT INFORMATION
  Report Type: Spontaneous
  Country: US (occurrence: US)
  Receive Date: 20200511
  Receipt Date: 20200511
  Transmission Date: 20200714
  Serious: No
  Sender: FDA-Public Use
  Company Number: None

PATIENT
  Age: 83 Year
  Sex: Female
  Weight: 59.4 kg

DRUGS (5)
  1. MULTIVITAMIN [Concomitant]
     Active Substance: VITAMINS
  2. APRISO [Suspect]
     Active Substance: MESALAMINE
     Indication: COLITIS
     Dosage: ?          QUANTITY:4 CAPSULE(S);?
     Route: 048
  3. CALCIUM/MAGNESIUM/ZINC [Concomitant]
  4. BUDESONIDE. [Concomitant]
     Active Substance: BUDESONIDE
  5. VITAMIN D [Concomitant]
     Active Substance: VITAMIN D NOS

REACTIONS (2)
  - Abdominal pain upper [None]
  - Diarrhoea [None]

NARRATIVE: CASE EVENT DATE: 20200420
